FAERS Safety Report 5061053-3 (Version None)
Quarter: 2006Q3

REPORT INFORMATION
  Report Type: 
  Country: None (occurrence: None)
  Receive Date: 20060725
  Receipt Date: 20060717
  Transmission Date: 20061208
  Serious: Yes (Other)
  Sender: FDA-Public Use
  Company Number: AU-ROCHE-455731

PATIENT
  Sex: Male

DRUGS (4)
  1. ROCEPHIN [Suspect]
     Indication: DRUG USE FOR UNKNOWN INDICATION
     Route: 065
  2. CELEBREX [Concomitant]
  3. SOMAC [Concomitant]
  4. BLOOD PRESSURE MEDICATION NOS [Concomitant]

REACTIONS (1)
  - DYSPNOEA [None]
